FAERS Safety Report 17101668 (Version 1)
Quarter: 2019Q4

REPORT INFORMATION
  Report Type: Report from Study
  Country: GB (occurrence: GB)
  Receive Date: 20191202
  Receipt Date: 20191202
  Transmission Date: 20200122
  Serious: Yes (Hospitalization)
  Sender: FDA-Public Use
  Company Number: GB-JNJFOC-20191109860

PATIENT
  Sex: Female

DRUGS (1)
  1. STELARA [Suspect]
     Active Substance: USTEKINUMAB
     Indication: CROHN^S DISEASE
     Route: 058

REACTIONS (6)
  - Urinary tract infection [Unknown]
  - Kidney infection [Unknown]
  - Respiratory arrest [Unknown]
  - Sepsis [Unknown]
  - Nephrolithiasis [Unknown]
  - Uterine prolapse [Unknown]
